FAERS Safety Report 8169003-8 (Version None)
Quarter: 2012Q1

REPORT INFORMATION
  Report Type: 
  Country: None (occurrence: None)
  Receive Date: 20120227
  Receipt Date: 20120217
  Transmission Date: 20120608
  Serious: Yes (Other)
  Sender: FDA-Public Use
  Company Number: PHHY2012TR014140

PATIENT
  Age: 23 Year
  Sex: Male

DRUGS (2)
  1. MEXILETINE HYDROCHLORIDE [Suspect]
     Indication: SUICIDE ATTEMPT
  2. MEXILETINE HYDROCHLORIDE [Suspect]
     Indication: MYOTONIA

REACTIONS (7)
  - HYPOTENSION [None]
  - BRADYCARDIA [None]
  - CONFUSIONAL STATE [None]
  - INTENTIONAL OVERDOSE [None]
  - SUICIDE ATTEMPT [None]
  - LOSS OF CONSCIOUSNESS [None]
  - DYSARTHRIA [None]
